FAERS Safety Report 6788456-0 (Version None)
Quarter: 2010Q2

REPORT INFORMATION
  Report Type: 
  Country: None (occurrence: None)
  Receive Date: 20100623
  Receipt Date: 20080310
  Transmission Date: 20101027
  Serious: No
  Sender: FDA-Public Use
  Company Number: US-PFIZER INC-2008022933

PATIENT
  Sex: Female

DRUGS (14)
  1. GEODON [Suspect]
     Indication: ANXIETY
     Dates: start: 20080101
  2. GEODON [Suspect]
     Indication: NERVOUSNESS
  3. NASONEX [Concomitant]
  4. PANADEINE CO [Concomitant]
  5. TEGRETOL [Concomitant]
  6. FEXOFENADINE [Concomitant]
  7. DICLOFENAC [Concomitant]
  8. PLAQUENIL [Concomitant]
  9. KEPPRA [Concomitant]
  10. METHOTREXATE [Concomitant]
  11. XANAX [Concomitant]
  12. TOPAMAX [Concomitant]
  13. AMITRIPTYLINE [Concomitant]
  14. MAXALT [Concomitant]

REACTIONS (1)
  - URINE ODOUR ABNORMAL [None]
